FAERS Safety Report 7333914-3 (Version None)
Quarter: 2011Q1

REPORT INFORMATION
  Report Type: 
  Country: None (occurrence: None)
  Receive Date: 20110307
  Receipt Date: 20110223
  Transmission Date: 20110831
  Serious: Yes (Hospitalization)
  Sender: FDA-Public Use
  Company Number: US-BIOGENIDEC-2010BI044322

PATIENT
  Age: 63 Year
  Sex: Female
  Weight: 66 kg

DRUGS (2)
  1. AVONEX [Suspect]
     Indication: MULTIPLE SCLEROSIS
     Route: 030
     Dates: start: 20030101
  2. AVONEX [Suspect]
     Route: 030
     Dates: start: 19980901, end: 20030101

REACTIONS (10)
  - FALL [None]
  - BALANCE DISORDER [None]
  - ASTHENIA [None]
  - MUSCLE STRAIN [None]
  - ANKLE FRACTURE [None]
  - ABASIA [None]
  - ARTHRALGIA [None]
  - URINARY TRACT INFECTION [None]
  - GAIT DISTURBANCE [None]
  - DYSSTASIA [None]
